FAERS Safety Report 22379307 (Version 3)
Quarter: 2023Q2

REPORT INFORMATION
  Report Type: Report from Study
  Country: US (occurrence: US)
  Receive Date: 20230529
  Receipt Date: 20230612
  Transmission Date: 20230722
  Serious: Yes (Hospitalization, Other)
  Sender: FDA-Public Use
  Company Number: US-JNJFOC-20230545164

PATIENT
  Age: 78 Year
  Sex: Male
  Weight: 71.7 kg

DRUGS (6)
  1. MACITENTAN [Suspect]
     Active Substance: MACITENTAN
     Indication: Pulmonary arterial hypertension
     Route: 048
     Dates: start: 20230421, end: 2023
  2. TYVASO [Suspect]
     Active Substance: TREPROSTINIL
     Indication: Pulmonary arterial hypertension
     Route: 055
  3. TYVASO [Suspect]
     Active Substance: TREPROSTINIL
     Route: 055
  4. TYVASO [Suspect]
     Active Substance: TREPROSTINIL
     Route: 055
     Dates: start: 20230119
  5. OFEV [Suspect]
     Active Substance: NINTEDANIB
     Indication: Product used for unknown indication
     Route: 065
  6. SILDENAFIL CITRATE [Concomitant]
     Active Substance: SILDENAFIL CITRATE

REACTIONS (16)
  - Hypervolaemia [Unknown]
  - Pulmonary arterial hypertension [Unknown]
  - Genital haemorrhage [Unknown]
  - Silicosis [Unknown]
  - Illness [Unknown]
  - Asthenia [Unknown]
  - Vision blurred [Unknown]
  - Dysgeusia [Unknown]
  - Genital erythema [Unknown]
  - Typical aura without headache [Unknown]
  - Throat irritation [Not Recovered/Not Resolved]
  - Nausea [Unknown]
  - Haemoptysis [Not Recovered/Not Resolved]
  - Diarrhoea [Not Recovered/Not Resolved]
  - Dyspnoea [Not Recovered/Not Resolved]
  - Pollakiuria [Not Recovered/Not Resolved]

NARRATIVE: CASE EVENT DATE: 20230330
